FAERS Safety Report 6193494-5 (Version None)
Quarter: 2009Q2

REPORT INFORMATION
  Report Type: 
  Country: None (occurrence: None)
  Receive Date: 20090518
  Receipt Date: 20090508
  Transmission Date: 20091009
  Serious: Yes (Other)
  Sender: FDA-Public Use
  Company Number: DE-BIOGENIDEC-2009BI008524

PATIENT
  Age: 31 Year
  Sex: Female
  Weight: 70 kg

DRUGS (1)
  1. TYSABRI [Suspect]
     Indication: RELAPSING-REMITTING MULTIPLE SCLEROSIS
     Route: 042
     Dates: start: 20080301

REACTIONS (10)
  - ANISOCYTOSIS [None]
  - C-REACTIVE PROTEIN [None]
  - EOSINOPHILIA [None]
  - LEUKOCYTOSIS [None]
  - LYMPHOCYTOSIS [None]
  - MICROCYTOSIS [None]
  - NEUTROPHIL COUNT [None]
  - NEUTROPHIL TOXIC GRANULATION PRESENT [None]
  - POIKILOCYTOSIS [None]
  - URINE ANALYSIS [None]
